FAERS Safety Report 11153218 (Version 2)
Quarter: 2015Q2

REPORT INFORMATION
  Report Type: Report from Study
  Country: BO (occurrence: BO)
  Receive Date: 20150601
  Receipt Date: 20150619
  Transmission Date: 20150821
  Serious: Yes (Death, Other)
  Sender: FDA-Public Use
  Company Number: PHHY2015BO065086

PATIENT
  Sex: Male

DRUGS (1)
  1. GLIVEC [Suspect]
     Active Substance: IMATINIB MESYLATE
     Indication: CHRONIC MYELOID LEUKAEMIA
     Dosage: 400 MG, QD
     Route: 065
     Dates: start: 20130606

REACTIONS (5)
  - Abscess limb [Fatal]
  - Sepsis [Fatal]
  - Haemoglobin decreased [Unknown]
  - White blood cell count increased [Unknown]
  - Platelet count decreased [Unknown]
